FAERS Safety Report 5892662-7 (Version None)
Quarter: 2008Q3

REPORT INFORMATION
  Report Type: 
  Country: None (occurrence: None)
  Receive Date: 20080923
  Receipt Date: 20080915
  Transmission Date: 20090109
  Serious: Yes (Other)
  Sender: FDA-Public Use
  Company Number: PHHY2008CA21370

PATIENT
  Sex: Female

DRUGS (1)
  1. ACLASTA [Suspect]
     Indication: OSTEOPOROSIS
     Dosage: UNK
     Dates: start: 20080908

REACTIONS (7)
  - ARTHRALGIA [None]
  - DYSPNOEA [None]
  - HYPOTENSION [None]
  - MYALGIA [None]
  - NAUSEA [None]
  - OXYGEN SATURATION DECREASED [None]
  - PYREXIA [None]
